FAERS Safety Report 6564954-X (Version None)
Quarter: 2010Q1

REPORT INFORMATION
  Report Type: 
  Country: None (occurrence: None)
  Receive Date: 20100201
  Receipt Date: 20100121
  Transmission Date: 20100710
  Serious: Yes (Other)
  Sender: FDA-Public Use
  Company Number: GB-SANOFI-AVENTIS-2010SA004057

PATIENT
  Age: 64 Year
  Sex: Female

DRUGS (5)
  1. TRENTAL [Suspect]
     Route: 065
     Dates: start: 20091001
  2. TRENTAL [Suspect]
     Route: 065
     Dates: end: 20091101
  3. TRENTAL [Suspect]
     Route: 065
     Dates: start: 20091101, end: 20091101
  4. TRENTAL [Suspect]
     Dosage: REDUCED DOSE, AND DEFINITIVELY STOPPED.
     Route: 065
     Dates: start: 20091101, end: 20091101
  5. FLIXOTIDE EVOHALER [Concomitant]
     Indication: ASTHMA

REACTIONS (3)
  - ANGINA PECTORIS [None]
  - MYOCARDIAL INFARCTION [None]
  - OFF LABEL USE [None]
